FAERS Safety Report 4592906-8 (Version None)
Quarter: 2005Q1

REPORT INFORMATION
  Report Type: 
  Country: None (occurrence: None)
  Receive Date: 20050125
  Receipt Date: 20040823
  Transmission Date: 20050727
  Serious: No
  Sender: FDA-Public Use
  Company Number: USA040876282

PATIENT
  Age: 51 Year
  Sex: Female

DRUGS (4)
  1. FORTEO [Suspect]
     Indication: OSTEOPOROSIS
     Dates: start: 20040101
  2. SYNTHROID (LEVOTHYROXINE SODIUIM) [Concomitant]
  3. CALCIUM GLUCONATE [Concomitant]
  4. ICAPS [Concomitant]

REACTIONS (4)
  - FATIGUE [None]
  - HYPOTHYROIDISM [None]
  - PROTEIN URINE ABSENT [None]
  - RENAL IMPAIRMENT [None]
